FAERS Safety Report 5887499-9 (Version None)
Quarter: 2008Q3

REPORT INFORMATION
  Report Type: 
  Country: None (occurrence: None)
  Receive Date: 20080917
  Receipt Date: 20080917
  Transmission Date: 20090109
  Serious: Yes (Hospitalization)
  Sender: FDA-Public Use
  Company Number: None

PATIENT
  Age: 76 Year
  Sex: Female
  Weight: 73.6 kg

DRUGS (17)
  1. HURRICAINE SPRAY (BENZOCAINE 20%) BEUTLICH [Suspect]
     Indication: BRONCHOSCOPY
     Dosage: X 1 DOSE
     Dates: start: 20080909
  2. XYLOCAINE [Suspect]
     Indication: BRONCHOSCOPY
     Dosage: PRN
     Dates: start: 20080909
  3. ASPIRIN [Concomitant]
  4. CEFTRIAXONE [Concomitant]
  5. PROMETHAZINE [Concomitant]
  6. MESALAMINE [Concomitant]
  7. NS [Concomitant]
  8. ALBUTEROL [Concomitant]
  9. METOCLOPRAMIDE [Concomitant]
  10. VANCOMYCIN HYDROCHLORIDE [Concomitant]
  11. LEVOFLOXACIN [Concomitant]
  12. OMEPRAZOLE [Concomitant]
  13. HYDROMORPHONE HCL [Concomitant]
  14. SOLIFENACIN [Concomitant]
  15. ONDANSETRON [Concomitant]
  16. BACTRIM [Concomitant]
  17. PERCOCET [Concomitant]

REACTIONS (3)
  - CYANOSIS [None]
  - DYSPNOEA [None]
  - OXYGEN SATURATION DECREASED [None]
